FAERS Safety Report 11972190 (Version 24)
Quarter: 2017Q3

REPORT INFORMATION
  Report Type: Report from Study
  Country: CA (occurrence: CA)
  Receive Date: 20160128
  Receipt Date: 20170915
  Transmission Date: 20171127
  Serious: Yes (Death, Hospitalization, Other)
  Sender: FDA-Public Use
  Company Number: PHHY2015CA073373

PATIENT
  Age: 74 Year
  Sex: Female

DRUGS (7)
  1. IODINE. [Concomitant]
     Active Substance: IODINE
     Indication: PRODUCT USED FOR UNKNOWN INDICATION
     Route: 065
  2. OXAZEPAM. [Concomitant]
     Active Substance: OXAZEPAM
     Indication: PRODUCT USED FOR UNKNOWN INDICATION
     Dosage: 15 MG, (HALF TABLET)
     Route: 065
  3. SANDOSTATIN LAR DEPOT [Suspect]
     Active Substance: OCTREOTIDE ACETATE
     Dosage: 20 MG, QMO (ONCE A MONTH)
     Route: 030
     Dates: start: 20160711, end: 20161004
  4. SANDOSTATIN [Suspect]
     Active Substance: OCTREOTIDE ACETATE
     Indication: VOMITING
     Dosage: 50 UG, BID CONTINUED FOR 2 WEEKS POST SANDOSTATIN LAR
     Route: 058
     Dates: start: 201504, end: 201506
  5. SANDOSTATIN LAR DEPOT [Suspect]
     Active Substance: OCTREOTIDE ACETATE
     Indication: VOMITING
     Dosage: 10 MG, QMO (ONCE A MONTH)
     Route: 030
     Dates: start: 20150519, end: 20160613
  6. SANDOSTATIN LAR DEPOT [Suspect]
     Active Substance: OCTREOTIDE ACETATE
     Dosage: 30 MG, QMO (EVERY 4 WEEKS)
     Route: 030
     Dates: start: 20161031
  7. METAMUCIL [Concomitant]
     Active Substance: PLANTAGO SEED
     Indication: PRODUCT USED FOR UNKNOWN INDICATION
     Dosage: 100 ML, PRN
     Route: 048

REACTIONS (38)
  - Vision blurred [Unknown]
  - Weight decreased [Unknown]
  - Inappropriate schedule of drug administration [Unknown]
  - Inguinal hernia [Recovering/Resolving]
  - Pruritus [Unknown]
  - Underdose [Unknown]
  - Dehydration [Unknown]
  - Encephalitis [Recovered/Resolved]
  - Abdominal pain lower [Unknown]
  - Diarrhoea [Recovered/Resolved]
  - Diarrhoea [Unknown]
  - General physical health deterioration [Not Recovered/Not Resolved]
  - Abdominal distension [Unknown]
  - Confusional state [Unknown]
  - Neoplasm progression [Unknown]
  - Hypoaesthesia [Not Recovered/Not Resolved]
  - Flatulence [Unknown]
  - Fatigue [Unknown]
  - Product use in unapproved indication [Unknown]
  - Death [Fatal]
  - Blood pressure systolic increased [Unknown]
  - Amnesia [Unknown]
  - Musculoskeletal pain [Unknown]
  - Body temperature decreased [Unknown]
  - Thirst [Unknown]
  - Vomiting [Recovering/Resolving]
  - Heart rate decreased [Unknown]
  - Decreased appetite [Unknown]
  - Dizziness postural [Unknown]
  - Blood pressure increased [Unknown]
  - Blood pressure diastolic decreased [Unknown]
  - Fall [Unknown]
  - Asthenia [Not Recovered/Not Resolved]
  - Tooth disorder [Unknown]
  - Saliva altered [Unknown]
  - Dyspepsia [Unknown]
  - Abdominal pain upper [Unknown]
  - Dyspnoea [Not Recovered/Not Resolved]

NARRATIVE: CASE EVENT DATE: 2015
